FAERS Safety Report 6840214-4 (Version None)
Quarter: 2010Q3

REPORT INFORMATION
  Report Type: 
  Country: None (occurrence: None)
  Receive Date: 20100713
  Receipt Date: 20100713
  Transmission Date: 20110219
  Serious: No
  Sender: FDA-Public Use
  Company Number: None

PATIENT

DRUGS (1)
  1. HYDROCHLOROTHIAZIDE [Suspect]
     Dosage: 1 CAPSULE DAILY PO 2-3 MONTHS
     Route: 048
     Dates: start: 20100401, end: 20100701

REACTIONS (2)
  - PRURITUS [None]
  - SKIN EXFOLIATION [None]
